FAERS Safety Report 4377882-5 (Version None)
Quarter: 2004Q2

REPORT INFORMATION
  Report Type: 
  Country: None (occurrence: None)
  Receive Date: 20040609
  Receipt Date: 20040525
  Transmission Date: 20050107
  Serious: Yes (Hospitalization)
  Sender: FDA-Public Use
  Company Number: 2004216707NL

PATIENT
  Age: 53 Year
  Sex: Male

DRUGS (2)
  1. CAMPTOSAR [Suspect]
     Dosage: 500 MG, CYCLIC (EVERY 3 WEEKS), IV
     Route: 042
     Dates: start: 20040501, end: 20040501
  2. CAPECITABINE (CAPECITABINE) [Suspect]
     Dosage: 2000 MG, BID (14 DAYS), ORAL
     Route: 048
     Dates: start: 20040501

REACTIONS (2)
  - CHEST PAIN [None]
  - FIBRIN D DIMER INCREASED [None]
